FAERS Safety Report 15182835 (Version 2)
Quarter: 2019Q1

REPORT INFORMATION
  Report Type: Spontaneous
  Country: US (occurrence: US)
  Receive Date: 20180723
  Receipt Date: 20190226
  Transmission Date: 20190417
  Serious: Yes (Death)
  Sender: FDA-Public Use
  Company Number: US-SYNEX-T201803049

PATIENT
  Sex: Male

DRUGS (1)
  1. INOMAX [Suspect]
     Active Substance: NITRIC OXIDE
     Indication: OXYGEN THERAPY
     Dosage: 20 PARTS PER MILLION
     Route: 065

REACTIONS (1)
  - Cardiac failure [Fatal]
